FAERS Safety Report 9747684 (Version 1)
Quarter: 2013Q4

REPORT INFORMATION
  Report Type: Spontaneous
  Country: US (occurrence: US)
  Receive Date: 20131212
  Receipt Date: 20131212
  Transmission Date: 20140711
  Serious: Yes (Hospitalization)
  Sender: FDA-Public Use
  Company Number: US-AMGEN-SAUSP2013086689

PATIENT
  Sex: 0

DRUGS (100)
  1. PEGFILGRASTIM [Suspect]
     Indication: FEBRILE NEUTROPENIA
     Dosage: UNK
     Route: 065
  2. RITUXIMAB [Suspect]
     Indication: HODGKIN^S DISEASE
     Dosage: UNK
     Route: 065
  3. RITUXIMAB [Suspect]
     Indication: LUNG NEOPLASM MALIGNANT
  4. RITUXIMAB [Suspect]
     Indication: BREAST CANCER
  5. CYCLOPHOSPHAMIDE [Suspect]
     Indication: HODGKIN^S DISEASE
     Dosage: UNK
     Route: 065
  6. CYCLOPHOSPHAMIDE [Suspect]
     Indication: NON-HODGKIN^S LYMPHOMA
  7. CYCLOPHOSPHAMIDE [Suspect]
     Indication: BREAST CANCER
  8. CYCLOPHOSPHAMIDE [Suspect]
     Indication: LUNG NEOPLASM MALIGNANT
  9. DOXORUBICIN [Suspect]
     Indication: HODGKIN^S DISEASE
     Dosage: UNK
     Route: 065
  10. DOXORUBICIN [Suspect]
     Indication: LUNG NEOPLASM MALIGNANT
  11. DOXORUBICIN [Suspect]
     Indication: BREAST CANCER
  12. DOXORUBICIN [Suspect]
     Indication: NON-HODGKIN^S LYMPHOMA
  13. DOCETAXEL [Suspect]
     Indication: HODGKIN^S DISEASE
     Dosage: UNK
     Route: 065
  14. DOCETAXEL [Suspect]
     Indication: LUNG NEOPLASM MALIGNANT
  15. DOCETAXEL [Suspect]
     Indication: BREAST CANCER
  16. DOCETAXEL [Suspect]
     Indication: NON-HODGKIN^S LYMPHOMA
  17. CARBOPLATIN [Suspect]
     Indication: HODGKIN^S DISEASE
     Dosage: UNK
     Route: 065
  18. CARBOPLATIN [Suspect]
     Indication: NON-HODGKIN^S LYMPHOMA
  19. CARBOPLATIN [Suspect]
     Indication: BREAST CANCER
  20. CARBOPLATIN [Suspect]
     Indication: LUNG NEOPLASM MALIGNANT
  21. VINCRISTINE [Suspect]
     Indication: HODGKIN^S DISEASE
     Dosage: UNK
     Route: 065
  22. VINCRISTINE [Suspect]
     Indication: NON-HODGKIN^S LYMPHOMA
  23. VINCRISTINE [Suspect]
     Indication: BREAST CANCER
  24. VINCRISTINE [Suspect]
     Indication: LUNG NEOPLASM MALIGNANT
  25. PREDNISONE [Suspect]
     Indication: HODGKIN^S DISEASE
     Dosage: UNK
     Route: 065
  26. PREDNISONE [Suspect]
     Indication: LUNG NEOPLASM MALIGNANT
  27. PREDNISONE [Suspect]
     Indication: NON-HODGKIN^S LYMPHOMA
  28. PREDNISONE [Suspect]
     Indication: BREAST CANCER
  29. BLEOMYCIN [Suspect]
     Indication: HODGKIN^S DISEASE
     Dosage: UNK
     Route: 065
  30. BLEOMYCIN [Suspect]
     Indication: NON-HODGKIN^S LYMPHOMA
  31. BLEOMYCIN [Suspect]
     Indication: BREAST CANCER
  32. BLEOMYCIN [Suspect]
     Indication: LUNG NEOPLASM MALIGNANT
  33. VINBLASTINE [Suspect]
     Indication: HODGKIN^S DISEASE
     Dosage: UNK
     Route: 065
  34. VINBLASTINE [Suspect]
     Indication: LUNG NEOPLASM MALIGNANT
  35. VINBLASTINE [Suspect]
     Indication: BREAST CANCER
  36. VINBLASTINE [Suspect]
     Indication: NON-HODGKIN^S LYMPHOMA
  37. TRASTUZUMAB [Suspect]
     Indication: HODGKIN^S DISEASE
     Route: 065
  38. TRASTUZUMAB [Suspect]
     Indication: NON-HODGKIN^S LYMPHOMA
  39. TRASTUZUMAB [Suspect]
     Indication: BREAST CANCER
  40. TRASTUZUMAB [Suspect]
     Indication: LUNG NEOPLASM MALIGNANT
  41. BENDAMUSTINE [Suspect]
     Indication: HODGKIN^S DISEASE
     Dosage: UNK
     Route: 065
  42. BENDAMUSTINE [Suspect]
     Indication: NON-HODGKIN^S LYMPHOMA
  43. BENDAMUSTINE [Suspect]
     Indication: LUNG NEOPLASM MALIGNANT
  44. BENDAMUSTINE [Suspect]
     Indication: BREAST CANCER
  45. PEMETREXED /01493902/ [Suspect]
     Indication: HODGKIN^S DISEASE
     Dosage: UNK
     Route: 065
  46. PEMETREXED /01493902/ [Suspect]
     Indication: NON-HODGKIN^S LYMPHOMA
  47. PEMETREXED /01493902/ [Suspect]
     Indication: BREAST CANCER
  48. PEMETREXED /01493902/ [Suspect]
     Indication: LUNG NEOPLASM MALIGNANT
  49. CHLORMETHINE HYDROCHLORIDE [Suspect]
     Indication: HODGKIN^S DISEASE
     Dosage: UNK
     Route: 065
  50. CHLORMETHINE HYDROCHLORIDE [Suspect]
     Indication: NON-HODGKIN^S LYMPHOMA
  51. CHLORMETHINE HYDROCHLORIDE [Suspect]
     Indication: LUNG NEOPLASM MALIGNANT
  52. CHLORMETHINE HYDROCHLORIDE [Suspect]
     Indication: BREAST CANCER
  53. PROCARBAZINE /00091702/ [Suspect]
     Indication: HODGKIN^S DISEASE
     Dosage: UNK
     Route: 065
  54. PROCARBAZINE /00091702/ [Suspect]
     Indication: NON-HODGKIN^S LYMPHOMA
  55. PROCARBAZINE /00091702/ [Suspect]
     Indication: LUNG NEOPLASM MALIGNANT
  56. PROCARBAZINE /00091702/ [Suspect]
     Indication: BREAST CANCER
  57. CISPLATIN [Suspect]
     Indication: HODGKIN^S DISEASE
     Dosage: UNK
     Route: 065
  58. CISPLATIN [Suspect]
     Indication: NON-HODGKIN^S LYMPHOMA
  59. CISPLATIN [Suspect]
     Indication: LUNG NEOPLASM MALIGNANT
  60. CISPLATIN [Suspect]
     Indication: BREAST CANCER
  61. GEMCITABINE /01215702/ [Suspect]
     Indication: HODGKIN^S DISEASE
     Dosage: UNK
     Route: 065
  62. GEMCITABINE /01215702/ [Suspect]
     Indication: NON-HODGKIN^S LYMPHOMA
  63. GEMCITABINE /01215702/ [Suspect]
     Indication: BREAST CANCER
  64. GEMCITABINE /01215702/ [Suspect]
     Indication: LUNG NEOPLASM MALIGNANT
  65. OXALIPLATIN [Suspect]
     Indication: HODGKIN^S DISEASE
     Dosage: UNK
     Route: 065
  66. OXALIPLATIN [Suspect]
     Indication: NON-HODGKIN^S LYMPHOMA
  67. OXALIPLATIN [Suspect]
     Indication: LUNG NEOPLASM MALIGNANT
  68. OXALIPLATIN [Suspect]
     Indication: BREAST CANCER
  69. MITOMYCIN [Suspect]
     Indication: HODGKIN^S DISEASE
     Dosage: UNK
     Route: 065
  70. MITOMYCIN [Suspect]
     Indication: NON-HODGKIN^S LYMPHOMA
  71. MITOMYCIN [Suspect]
     Indication: BREAST CANCER
  72. MITOMYCIN [Suspect]
     Indication: LUNG NEOPLASM MALIGNANT
  73. FLUOROURACIL [Suspect]
     Indication: HODGKIN^S DISEASE
     Dosage: UNK
     Route: 065
  74. FLUOROURACIL [Suspect]
     Indication: LUNG NEOPLASM MALIGNANT
  75. FLUOROURACIL [Suspect]
     Indication: BREAST CANCER
  76. FLUOROURACIL [Suspect]
     Indication: NON-HODGKIN^S LYMPHOMA
  77. VINORELBINE /00988503/ [Suspect]
     Indication: HODGKIN^S DISEASE
     Dosage: UNK
     Route: 065
  78. VINORELBINE /00988503/ [Suspect]
     Indication: NON-HODGKIN^S LYMPHOMA
  79. VINORELBINE /00988503/ [Suspect]
     Indication: BREAST CANCER
  80. VINORELBINE /00988503/ [Suspect]
     Indication: LUNG NEOPLASM MALIGNANT
  81. DACARBAZINE [Suspect]
     Indication: HODGKIN^S DISEASE
     Dosage: UNK
     Route: 065
  82. DACARBAZINE [Suspect]
     Indication: NON-HODGKIN^S LYMPHOMA
  83. DACARBAZINE [Suspect]
     Indication: LUNG NEOPLASM MALIGNANT
  84. DACARBAZINE [Suspect]
     Indication: BREAST CANCER
  85. PACLITAXEL [Suspect]
     Indication: HODGKIN^S DISEASE
     Dosage: UNK
     Route: 065
  86. PACLITAXEL [Suspect]
     Indication: NON-HODGKIN^S LYMPHOMA
  87. PACLITAXEL [Suspect]
     Indication: BREAST CANCER
  88. PACLITAXEL [Suspect]
     Indication: LUNG NEOPLASM MALIGNANT
  89. ETOPOSIDE [Suspect]
     Indication: HODGKIN^S DISEASE
     Dosage: UNK
     Route: 065
  90. ETOPOSIDE [Suspect]
     Indication: NON-HODGKIN^S LYMPHOMA
  91. ETOPOSIDE [Suspect]
     Indication: BREAST CANCER
  92. ETOPOSIDE [Suspect]
     Indication: LUNG NEOPLASM MALIGNANT
  93. FLUDARABINE /01004602/ [Suspect]
     Indication: HODGKIN^S DISEASE
     Dosage: UNK
     Route: 065
  94. FLUDARABINE /01004602/ [Suspect]
     Indication: NON-HODGKIN^S LYMPHOMA
  95. FLUDARABINE /01004602/ [Suspect]
     Indication: LUNG NEOPLASM MALIGNANT
  96. FLUDARABINE /01004602/ [Suspect]
     Indication: BREAST CANCER
  97. AZACITIDINE [Suspect]
     Indication: HODGKIN^S DISEASE
     Dosage: UNK
     Route: 065
  98. AZACITIDINE [Suspect]
     Indication: NON-HODGKIN^S LYMPHOMA
  99. AZACITIDINE [Suspect]
     Indication: BREAST CANCER
  100. AZACITIDINE [Suspect]
     Indication: LUNG NEOPLASM MALIGNANT

REACTIONS (5)
  - Arthralgia [Unknown]
  - Musculoskeletal pain [Unknown]
  - Rash [Unknown]
  - Drug ineffective [Unknown]
  - Febrile neutropenia [Unknown]
